FAERS Safety Report 23828144 (Version 4)
Quarter: 2024Q3

REPORT INFORMATION
  Report Type: Spontaneous
  Country: US (occurrence: US)
  Receive Date: 20240507
  Receipt Date: 20240730
  Transmission Date: 20241017
  Serious: Yes (Other)
  Sender: BRISTOL MYERS SQUIBB
  Company Number: US-BRISTOL-MYERS SQUIBB COMPANY-2024-069956

PATIENT
  Age: 87 Year
  Sex: Female

DRUGS (5)
  1. POMALYST [Suspect]
     Active Substance: POMALIDOMIDE
     Indication: Plasma cell myeloma
     Dosage: FREQUENCY: TAKE 1 CAPSULE ORALLY WITH WATER, WITH OR WITHOUT FOOD, AT THE SAME TIME EVERY DAY FOR DA
     Route: 048
  2. POMALYST [Suspect]
     Active Substance: POMALIDOMIDE
     Route: 048
  3. POMALYST [Suspect]
     Active Substance: POMALIDOMIDE
     Route: 048
     Dates: start: 202305
  4. POMALYST [Suspect]
     Active Substance: POMALIDOMIDE
     Dosage: TAKE 1 CAPSULE ORALLY WITH WATER, WITH OR WITHOUT FOOD, AT THE SAME TIME EVERY DAY FOR DAYS 1-21 EVE
     Route: 048
  5. POMALYST [Suspect]
     Active Substance: POMALIDOMIDE
     Dosage: TAKE 1 CAPSULE ORALLY WITH WATER, WITH OR WITHOUT FOOD, AT THE SAME TIME EVERY DAY FOR DAYS 1-21 EVE
     Route: 048

REACTIONS (5)
  - Pruritus [Recovered/Resolved]
  - Swelling face [Recovered/Resolved]
  - Eye oedema [Not Recovered/Not Resolved]
  - Off label use [Unknown]
  - Eye swelling [Recovered/Resolved]

NARRATIVE: CASE EVENT DATE: 20240101
